FAERS Safety Report 11766691 (Version 3)
Quarter: 2015Q4

REPORT INFORMATION
  Report Type: Spontaneous
  Country: JP (occurrence: JP)
  Receive Date: 20151123
  Receipt Date: 20151209
  Transmission Date: 20160304
  Serious: Yes (Hospitalization)
  Sender: FDA-Public Use
  Company Number: JP-INDOCO-000009

PATIENT
  Age: 40 Year
  Sex: Male

DRUGS (9)
  1. QUAZEPAM. [Concomitant]
     Active Substance: QUAZEPAM
  2. VILDAGLIPTIN [Concomitant]
     Active Substance: VILDAGLIPTIN
  3. BROTIZOLAM [Concomitant]
     Active Substance: BROTIZOLAM
  4. GLIMEPIRIDE. [Suspect]
     Active Substance: GLIMEPIRIDE
     Dosage: 14 TABLETS OF GLIMEPIRIDE (3 MG EACH)
  5. INSULIN [Concomitant]
     Active Substance: INSULIN NOS
     Dosage: GRADUALLY INCREASED TO APPROXIMATELY 30-50 UNITS DAILY
  6. METFORMIN [Concomitant]
     Active Substance: METFORMIN HYDROCHLORIDE
  7. ROSUVASTATIN/ROSUVASTATIN CALCIUM [Concomitant]
  8. MITIGLINIDE/MITIGLINIDE CALCIUM [Concomitant]
  9. ZOLPIDEM [Suspect]
     Active Substance: ZOLPIDEM\ZOLPIDEM TARTRATE
     Dosage: 10 TABLETS OF ZOLPIDEM (5 MG EACH)

REACTIONS (5)
  - Intentional overdose [Unknown]
  - Hypoglycaemia [Recovered/Resolved]
  - Suicide attempt [Unknown]
  - Coronary artery stenosis [Unknown]
  - Heart injury [Unknown]

NARRATIVE: CASE EVENT DATE: 20120101
